FAERS Safety Report 6342324-7 (Version None)
Quarter: 2009Q3

REPORT INFORMATION
  Report Type: 
  Country: None (occurrence: None)
  Receive Date: 20090907
  Receipt Date: 20090826
  Transmission Date: 20100115
  Serious: Yes (Death)
  Sender: FDA-Public Use
  Company Number: US-PFIZER INC-2009178273

PATIENT
  Sex: Male

DRUGS (1)
  1. *NO SUBJECT DRUG [Suspect]
     Indication: HIV INFECTION
     Dosage: NO DOSE GIVEN
     Route: 048
     Dates: start: 20051004, end: 20051128

REACTIONS (1)
  - LUNG SQUAMOUS CELL CARCINOMA STAGE UNSPECIFIED [None]
